FAERS Safety Report 6207772-4 (Version None)
Quarter: 2009Q2

REPORT INFORMATION
  Report Type: 
  Country: None (occurrence: None)
  Receive Date: 20090522
  Receipt Date: 20090508
  Transmission Date: 20091009
  Serious: Yes (Hospitalization, Other)
  Sender: FDA-Public Use
  Company Number: DSJ-2009-03719

PATIENT
  Age: 61 Year
  Sex: Male
  Weight: 56 kg

DRUGS (5)
  1. OLMESARTAN MEDOXOMIL [Suspect]
     Indication: HYPERTENSION
     Dosage: 40 MG (20 MG, 2 IN 1 D), PER ORAL, 20 MG (20 MG, 1 IN 1 D), PER ORAL
     Route: 048
     Dates: start: 20080804, end: 20080810
  2. ACETYLSALICYLIC ACID SRT [Concomitant]
  3. TAKEPRON (LANSOPRAZOLE) (TABLET) (LANSOPRAZOLE) [Concomitant]
  4. MILLIS TAPE (GLYCERYL TRINITRATE) (POULTICE OR PATCH) (GLYCERYL TRINIT [Concomitant]
  5. NORVASC [Concomitant]

REACTIONS (3)
  - ACUTE MYOCARDIAL INFARCTION [None]
  - HYPOAESTHESIA [None]
  - HYPOGLYCAEMIA [None]
